FAERS Safety Report 5275503-0 (Version None)
Quarter: 2007Q1

REPORT INFORMATION
  Report Type: 
  Country: None (occurrence: None)
  Receive Date: 20061213
  Receipt Date: 20051012
  Transmission Date: 20070707
  Serious: No
  Sender: FDA-Public Use
  Company Number: 2005UW15316

PATIENT
  Age: 18 Year
  Sex: Female
  Weight: 70.306 kg

DRUGS (6)
  1. SEROQUEL [Suspect]
     Indication: BIPOLAR DISORDER
     Dates: start: 20030101
  2. SEROQUEL [Suspect]
     Indication: BIPOLAR DISORDER
     Dosage: 100 MG HS PO
     Route: 048
     Dates: start: 20050601
  3. SEROQUEL [Suspect]
     Indication: BIPOLAR DISORDER
     Dosage: 2000 MG ONCE PO
     Route: 048
     Dates: start: 20051011, end: 20051011
  4. LAMICTAL [Concomitant]
  5. LEVOXYL [Concomitant]
  6. PROZAC [Concomitant]

REACTIONS (4)
  - ELECTROCARDIOGRAM QT CORRECTED INTERVAL PROLONGED [None]
  - INTENTIONAL OVERDOSE [None]
  - SEDATION [None]
  - TREMOR [None]
